FAERS Safety Report 8286081 (Version 3)
Quarter: 2014Q1

REPORT INFORMATION
  Report Type: Spontaneous
  Country: US (occurrence: US)
  Receive Date: 20111213
  Receipt Date: 20140122
  Transmission Date: 20141002
  Serious: Yes (Hospitalization, Other)
  Sender: FDA-Public Use
  Company Number: US-ROCHE-1021229

PATIENT
  Sex: Female
  Weight: 45.4 kg

DRUGS (2)
  1. ACCUTANE [Suspect]
     Indication: ACNE
     Dosage: FOR 6 MONTHS
     Route: 048
     Dates: start: 1994
  2. ACCUTANE [Suspect]
     Route: 048
     Dates: start: 199505, end: 199508

REACTIONS (8)
  - Colitis ulcerative [Unknown]
  - Inflammatory bowel disease [Unknown]
  - Depression [Unknown]
  - Injury [Unknown]
  - Suicidal ideation [Unknown]
  - Mental disorder [Unknown]
  - Intestinal haemorrhage [Unknown]
  - Intestinal obstruction [Unknown]
